FAERS Safety Report 6049366-X (Version None)
Quarter: 2009Q1

REPORT INFORMATION
  Report Type: 
  Country: None (occurrence: None)
  Receive Date: 20090123
  Receipt Date: 20090115
  Transmission Date: 20090719
  Serious: Yes (Hospitalization)
  Sender: FDA-Public Use
  Company Number: FR-PFIZER INC-2009157143

PATIENT

DRUGS (3)
  1. SALAZOPYRIN [Suspect]
     Indication: OSTEITIS
     Dosage: UNK
     Route: 048
     Dates: start: 20080920, end: 20081011
  2. PROFENID [Suspect]
     Indication: OSTEITIS
     Dosage: UNK
     Route: 048
     Dates: start: 20080920, end: 20081011
  3. MOPRAL [Suspect]
     Dosage: UNK
     Route: 048
     Dates: start: 20080920, end: 20081011

REACTIONS (6)
  - ASTHENIA [None]
  - METABOLIC ACIDOSIS [None]
  - PYREXIA [None]
  - RESPIRATORY ALKALOSIS [None]
  - TACHYPNOEA [None]
  - VOMITING [None]
